FAERS Safety Report 9072725 (Version 1)
Quarter: 2013Q1

REPORT INFORMATION
  Report Type: Report from Study
  Country: US (occurrence: US)
  Receive Date: 20130129
  Receipt Date: 20130129
  Transmission Date: 20140127
  Serious: No
  Sender: FDA-Public Use
  Company Number: US-ABBOTT-12P-163-0940540-00

PATIENT
  Age: 35 Year
  Sex: Female

DRUGS (12)
  1. HUMIRA 40 MG/0.8 ML PEN [Suspect]
     Indication: PSORIASIS
     Dates: start: 20120503
  2. GENERIC MOBIC [Concomitant]
     Indication: INFLAMMATION
  3. SKELAXIN [Concomitant]
     Indication: MUSCLE SPASMS
  4. TOPIRAMATE [Concomitant]
     Indication: HEADACHE
  5. GABAPENTIN [Concomitant]
     Indication: CONVULSION
     Dosage: AT BEDTIME
  6. GABAPENTIN [Concomitant]
     Indication: NEURALGIA
  7. CLOBETASOL PROPIONATE [Concomitant]
     Indication: PRODUCT USED FOR UNKNOWN INDICATION
     Dosage: APPLY CREAM TWICE DAILY
  8. METOPROLOL [Concomitant]
     Indication: HYPERTENSION
  9. FLUOXETINE [Concomitant]
     Indication: DEPRESSION
  10. CYMBALTA [Concomitant]
     Indication: DEPRESSION
  11. CYMBALTA [Concomitant]
     Indication: NEURALGIA
  12. NORCO [Concomitant]
     Indication: PAIN
     Dosage: 10/325MG 1-2 TABS EVERY 4 HOURS AS NEEDED

REACTIONS (9)
  - Fatigue [Unknown]
  - Injection site pain [Recovering/Resolving]
  - Injection site bruising [Recovering/Resolving]
  - Injection site swelling [Recovering/Resolving]
  - Chest discomfort [Recovering/Resolving]
  - Muscle tightness [Recovering/Resolving]
  - Dyspnoea [Recovering/Resolving]
  - Heart rate increased [Recovering/Resolving]
  - Inflammation [Recovering/Resolving]
